FAERS Safety Report 24542435 (Version 1)
Quarter: 2024Q4

REPORT INFORMATION
  Report Type: Spontaneous
  Country: DE (occurrence: DE)
  Receive Date: 20241024
  Receipt Date: 20241024
  Transmission Date: 20250114
  Serious: Yes (Death, Life-Threatening, Hospitalization, Other)
  Sender: DENTSPLY
  Company Number: DE-DENTSPLY-2024SCDP000298

PATIENT

DRUGS (1)
  1. MEPIVACAINE [Suspect]
     Active Substance: MEPIVACAINE HYDROCHLORIDE
     Indication: Analgesic therapy
     Dosage: UNK DOSE OF MEPIVACAINE (ADMINISTERED VIA INTRAOSSEOUS ACCESS FOR ANALGESIC REASON)

REACTIONS (2)
  - Circulatory collapse [Fatal]
  - Off label use [Fatal]
